FAERS Safety Report 13458642 (Version 1)
Quarter: 2017Q2

REPORT INFORMATION
  Report Type: Spontaneous
  Country: JP (occurrence: JP)
  Receive Date: 20170419
  Receipt Date: 20170419
  Transmission Date: 20170830
  Serious: Yes (Other)
  Sender: FDA-Public Use
  Company Number: JP-JNJFOC-20170415036

PATIENT

DRUGS (1)
  1. SIMPONI [Suspect]
     Active Substance: GOLIMUMAB
     Indication: RHEUMATOID ARTHRITIS
     Route: 058

REACTIONS (6)
  - Alopecia [Unknown]
  - Skin ulcer [Unknown]
  - Rash [Unknown]
  - Cellulitis [Unknown]
  - Conjunctival hyperaemia [Unknown]
  - Lymphoma [Unknown]
